FAERS Safety Report 17375629 (Version 1)
Quarter: 2020Q1

REPORT INFORMATION
  Report Type: Report from Study
  Country: CA (occurrence: CA)
  Receive Date: 20200206
  Receipt Date: 20200206
  Transmission Date: 20200409
  Serious: Yes (Death, Hospitalization, Other)
  Sender: FDA-Public Use
  Company Number: CA-TEVA-2020-CA-1178283

PATIENT
  Sex: Male
  Weight: 90 kg

DRUGS (17)
  1. CIPROFLOXACIN. [Suspect]
     Active Substance: CIPROFLOXACIN
     Indication: LOCALISED INFECTION
     Route: 065
  2. ESBRIET [Suspect]
     Active Substance: PIRFENIDONE
     Indication: IDIOPATHIC PULMONARY FIBROSIS
     Dosage: 801 MILLIGRAM DAILY;
     Route: 048
  3. PANTOLOC [PANTOPRAZOLE] [Concomitant]
     Active Substance: PANTOPRAZOLE SODIUM
  4. FUROSEMIDE. [Concomitant]
     Active Substance: FUROSEMIDE
  5. SPIRIVA [Concomitant]
     Active Substance: TIOTROPIUM BROMIDE MONOHYDRATE
  6. SYMBICORT [Concomitant]
     Active Substance: BUDESONIDE\FORMOTEROL FUMARATE DIHYDRATE
  7. NITROGLYCERIN. [Concomitant]
     Active Substance: NITROGLYCERIN
     Route: 065
  8. ACETYLSALICYLIC ACID [Concomitant]
     Active Substance: ASPIRIN
  9. LOPERAMIDE [Concomitant]
     Active Substance: LOPERAMIDE
  10. METOPROLOL. [Concomitant]
     Active Substance: METOPROLOL
  11. RANITIDINE. [Concomitant]
     Active Substance: RANITIDINE
  12. WARFARIN [Concomitant]
     Active Substance: WARFARIN
  13. PREGABALIN. [Concomitant]
     Active Substance: PREGABALIN
  14. ACETAMINOPHEN. [Concomitant]
     Active Substance: ACETAMINOPHEN
  15. IRBESARTAN. [Concomitant]
     Active Substance: IRBESARTAN
  16. ISOSORBIDE MONONITRATE. [Concomitant]
     Active Substance: ISOSORBIDE MONONITRATE
  17. SALBUTAMOL [Concomitant]
     Active Substance: ALBUTEROL

REACTIONS (14)
  - Atrial flutter [Fatal]
  - Cardiac disorder [Fatal]
  - Chronic obstructive pulmonary disease [Fatal]
  - Lung disorder [Fatal]
  - Purulent discharge [Fatal]
  - Cardiac failure congestive [Fatal]
  - Diabetes mellitus [Fatal]
  - Hypertension [Fatal]
  - Weight decreased [Fatal]
  - Acute kidney injury [Fatal]
  - Coronary artery disease [Fatal]
  - Drug interaction [Fatal]
  - Localised infection [Fatal]
  - Syncope [Fatal]
